FAERS Safety Report 8388435-6 (Version None)
Quarter: 2012Q2

REPORT INFORMATION
  Report Type: 
  Country: None (occurrence: None)
  Receive Date: 20120525
  Receipt Date: 20120517
  Transmission Date: 20120825
  Serious: Yes (Death, Other)
  Sender: FDA-Public Use
  Company Number: PHHY2012ZA041086

PATIENT
  Age: 19 Year
  Sex: Male

DRUGS (4)
  1. DESFERAL [Suspect]
     Dates: start: 20120510
  2. DESFERAL [Suspect]
     Dates: start: 20120511
  3. DESFERAL [Suspect]
     Dosage: 500 MG
  4. FERRIPROX [Concomitant]

REACTIONS (5)
  - CIRCULATORY COLLAPSE [None]
  - DEATH [None]
  - SERUM FERRITIN INCREASED [None]
  - DIABETIC KETOACIDOSIS [None]
  - DIABETIC COMA [None]
